FAERS Safety Report 9156278 (Version 1)
Quarter: 2013Q1

REPORT INFORMATION
  Report Type: Spontaneous
  Country: BR (occurrence: BR)
  Receive Date: 20130311
  Receipt Date: 20130311
  Transmission Date: 20140127
  Serious: Yes (Other)
  Sender: FDA-Public Use
  Company Number: BR-BRISTOL-MYERS SQUIBB COMPANY-17443953

PATIENT
  Age: 60 Year
  Sex: Female

DRUGS (1)
  1. ONGLYZA TABS 2.5 MG [Suspect]

REACTIONS (1)
  - Haemodialysis [Unknown]
